FAERS Safety Report 10261268 (Version 5)
Quarter: 2014Q3

REPORT INFORMATION
  Report Type: Spontaneous
  Country: US (occurrence: None)
  Receive Date: 20140624
  Receipt Date: 20140806
  Transmission Date: 20150326
  Serious: Yes (Hospitalization)
  Sender: FDA-Public Use
  Company Number: UNT-2014-002072

PATIENT
  Age: 58 Year
  Sex: Male

DRUGS (11)
  1. TYVASO [Suspect]
     Active Substance: TREPROSTINIL
     Indication: PULMONARY ARTERIAL HYPERTENSION
     Route: 055
     Dates: start: 20140604, end: 20140628
  2. LACTULOSE. [Concomitant]
     Active Substance: LACTULOSE
  3. PROTONIX [Concomitant]
     Active Substance: PANTOPRAZOLE SODIUM
  4. BUMEX (BUMETANIDE) [Concomitant]
  5. COUMADIN [Concomitant]
     Active Substance: WARFARIN SODIUM
  6. XIFAXAN [Concomitant]
     Active Substance: RIFAXIMIN
  7. LOPRESSOR [Concomitant]
     Active Substance: METOPROLOL TARTRATE
  8. REVATIO [Concomitant]
     Active Substance: SILDENAFIL CITRATE
  9. DIGOXIN. [Concomitant]
     Active Substance: DIGOXIN
  10. ALLOPURINOL. [Concomitant]
     Active Substance: ALLOPURINOL
  11. REMODULIN [Suspect]
     Active Substance: TREPROSTINIL
     Indication: PULMONARY ARTERIAL HYPERTENSION
     Route: 058
     Dates: start: 20140718

REACTIONS (9)
  - Malaise [None]
  - Fluid retention [None]
  - Drug intolerance [None]
  - Dysgeusia [None]
  - Cough [None]
  - Dyspnoea [None]
  - Chest discomfort [None]
  - Infusion site pain [None]
  - Infusion site erythema [None]
